FAERS Safety Report 16388190 (Version 1)
Quarter: 2019Q2

REPORT INFORMATION
  Report Type: Spontaneous
  Country: NG (occurrence: NG)
  Receive Date: 20190604
  Receipt Date: 20190604
  Transmission Date: 20190711
  Serious: Yes (Other)
  Sender: FDA-Public Use
  Company Number: NG-MICRO LABS LIMITED-ML2019-01333

PATIENT
  Age: 8 Year
  Sex: Female
  Weight: 26 kg

DRUGS (1)
  1. LAMIVUDINE, NEVIRAPINE AND ZIDOVUDINE [Suspect]
     Active Substance: LAMIVUDINE\NEVIRAPINE\ZIDOVUDINE
     Indication: PERINATAL HIV INFECTION
     Dosage: 9 YEARS WITH A GOOD MEDICATION ADHERENCE.

REACTIONS (1)
  - Primary hypothyroidism [Unknown]
